FAERS Safety Report 18021700 (Version 1)
Quarter: 2020Q3

REPORT INFORMATION
  Report Type: Spontaneous
  Country: AR (occurrence: AR)
  Receive Date: 20200714
  Receipt Date: 20200714
  Transmission Date: 20201103
  Serious: Yes (Hospitalization)
  Sender: FDA-Public Use
  Company Number: NVSC2020AR196832

PATIENT
  Age: 25 Year
  Sex: Male

DRUGS (7)
  1. CALCIUM [Suspect]
     Active Substance: CALCIUM
     Indication: HYPOPARATHYROIDISM
     Dosage: 2.5 G, QD
     Route: 065
  2. CALCITRIOL. [Suspect]
     Active Substance: CALCITRIOL
     Dosage: 1.5 UG, QD
     Route: 065
  3. CALCITRIOL. [Suspect]
     Active Substance: CALCITRIOL
     Dosage: 0.75 UG, QD
     Route: 065
  4. CALCIUM [Suspect]
     Active Substance: CALCIUM
     Dosage: 12 G
     Route: 048
  5. MAGNESIUM SULFATE. [Suspect]
     Active Substance: MAGNESIUM SULFATE
     Indication: HYPOPARATHYROIDISM
     Dosage: UNK
     Route: 065
  6. CALCITRIOL. [Suspect]
     Active Substance: CALCITRIOL
     Indication: HYPOPARATHYROIDISM
     Dosage: 0.25 UG, QD
     Route: 065
  7. VITAMIN D3 [Suspect]
     Active Substance: CHOLECALCIFEROL
     Indication: HYPOPARATHYROIDISM
     Dosage: 1000 IU, QD
     Route: 065

REACTIONS (3)
  - Electrocardiogram QT prolonged [Unknown]
  - Hypocalcaemia [Unknown]
  - Laryngospasm [Unknown]
